FAERS Safety Report 12391850 (Version 1)
Quarter: 2016Q2

REPORT INFORMATION
  Report Type: Spontaneous
  Country: US (occurrence: US)
  Receive Date: 20160523
  Receipt Date: 20160523
  Transmission Date: 20160815
  Serious: No
  Sender: FDA-Public Use
  Company Number: US-BIOGEN-2016BI00210468

PATIENT
  Sex: Female

DRUGS (1)
  1. TYSABRI [Suspect]
     Active Substance: NATALIZUMAB
     Indication: MULTIPLE SCLEROSIS
     Route: 065
     Dates: start: 20140612

REACTIONS (4)
  - General symptom [Recovered/Resolved]
  - Corrective lens user [Recovered/Resolved]
  - Cataract [Recovered/Resolved]
  - Nasopharyngitis [Not Recovered/Not Resolved]
